FAERS Safety Report 5487099-9 (Version None)
Quarter: 2007Q4

REPORT INFORMATION
  Report Type: 
  Country: None (occurrence: None)
  Receive Date: 20071016
  Receipt Date: 20071004
  Transmission Date: 20080405
  Serious: Yes (Other)
  Sender: FDA-Public Use
  Company Number: GB-ROCHE-524166

PATIENT
  Age: 52 Year
  Sex: Female
  Weight: 54 kg

DRUGS (9)
  1. GRANISETRON  HCL [Suspect]
     Indication: LYMPHOMA
     Route: 042
     Dates: start: 20070828
  2. ZOFRAN [Suspect]
     Indication: DRUG USE FOR UNKNOWN INDICATION
     Route: 048
  3. VINCRISTINE SULFATE [Suspect]
     Indication: LYMPHOMA
     Route: 042
  4. TEGRETOL [Suspect]
     Indication: EPILEPSY
     Route: 048
  5. PREDNISONE [Suspect]
     Indication: LYMPHOMA
     Route: 042
  6. FLUDARABINE PHOSPHATE [Suspect]
     Indication: CHRONIC LYMPHOCYTIC LEUKAEMIA
     Route: 065
  7. DOXORUBICIN HCL [Suspect]
     Indication: LYMPHOMA
     Route: 042
  8. CYCLOPHOSPHAMIDE [Suspect]
     Indication: LYMPHOMA
     Route: 042
  9. CYCLIZINE [Suspect]
     Indication: DRUG USE FOR UNKNOWN INDICATION
     Route: 042

REACTIONS (2)
  - DRUG INTERACTION [None]
  - NAUSEA [None]
